FAERS Safety Report 5583188-9 (Version None)
Quarter: 2008Q1

REPORT INFORMATION
  Report Type: 
  Country: None (occurrence: None)
  Receive Date: 20080107
  Receipt Date: 20071228
  Transmission Date: 20080703
  Serious: Yes (Hospitalization)
  Sender: FDA-Public Use
  Company Number: FR-ABBOTT-07P-056-0431695-00

PATIENT
  Age: 51 Year
  Sex: Male

DRUGS (5)
  1. DEPAKOTE [Suspect]
     Indication: BIPOLAR I DISORDER
     Route: 048
     Dates: start: 20030101, end: 20071001
  2. DEPAKOTE [Suspect]
     Route: 048
     Dates: start: 20071001
  3. OXCARBAZEPINE [Suspect]
     Indication: BIPOLAR I DISORDER
     Route: 048
     Dates: start: 20030101
  4. CLOZAPINE [Suspect]
     Indication: BIPOLAR I DISORDER
     Route: 048
     Dates: start: 20030101, end: 20071001
  5. CLOZAPINE [Suspect]
     Route: 048
     Dates: start: 20071001

REACTIONS (6)
  - COGNITIVE DISORDER [None]
  - CONFUSIONAL STATE [None]
  - FINE MOTOR DELAY [None]
  - MEMORY IMPAIRMENT [None]
  - PSYCHOMOTOR SKILLS IMPAIRED [None]
  - STUPOR [None]
